FAERS Safety Report 7298322-2 (Version None)
Quarter: 2011Q1

REPORT INFORMATION
  Report Type: 
  Country: None (occurrence: None)
  Receive Date: 20110217
  Receipt Date: 20100409
  Transmission Date: 20110831
  Serious: No
  Sender: FDA-Public Use
  Company Number: US-PFIZER INC-2010046017

PATIENT
  Sex: Female
  Weight: 61.224 kg

DRUGS (2)
  1. XALATAN [Suspect]
     Indication: GLAUCOMA
     Dosage: UNK, DAILY
     Dates: start: 20080101
  2. ALPHAGAN [Concomitant]
     Dosage: UNK

REACTIONS (3)
  - INCORRECT DOSE ADMINISTERED [None]
  - EYE PAIN [None]
  - UNEVALUABLE EVENT [None]
